FAERS Safety Report 9799401 (Version 3)
Quarter: 2014Q1

REPORT INFORMATION
  Report Type: Spontaneous
  Country: IT (occurrence: None)
  Receive Date: 20131231
  Receipt Date: 20140214
  Transmission Date: 20141002
  Serious: Yes (Hospitalization)
  Sender: FDA-Public Use
  Company Number: AUR-APL-2013-10749

PATIENT
  Age: 66 Year
  Sex: Female
  Weight: 60 kg

DRUGS (2)
  1. LEVOFLOXACIN [Suspect]
     Indication: CHRONIC OBSTRUCTIVE PULMONARY DISEASE
     Dosage: (500 MG, 1 D)
     Route: 048
     Dates: start: 20131024, end: 20131027
  2. TAVOR (LORAZEPAM) [Concomitant]

REACTIONS (5)
  - Confabulation [None]
  - Confusional state [None]
  - Tachycardia [None]
  - Disorientation [None]
  - Hallucination [None]
